FAERS Safety Report 9211597 (Version 1)
Quarter: 2013Q2

REPORT INFORMATION
  Report Type: Spontaneous
  Country: US (occurrence: US)
  Receive Date: 20130404
  Receipt Date: 20130404
  Transmission Date: 20140414
  Serious: No
  Sender: FDA-Public Use
  Company Number: US-AMGEN-USASP2012007532

PATIENT
  Age: 75 Year
  Sex: Female

DRUGS (1)
  1. ENBREL [Suspect]
     Indication: RHEUMATOID ARTHRITIS
     Dosage: 50 MG, WEEKLY
     Dates: start: 20011001, end: 201302

REACTIONS (4)
  - Nodule [Unknown]
  - Rheumatoid arthritis [Unknown]
  - Infection [Unknown]
  - Sinusitis [Not Recovered/Not Resolved]
